FAERS Safety Report 9313058 (Version 1)
Quarter: 2013Q2

REPORT INFORMATION
  Report Type: Spontaneous
  Country: US (occurrence: US)
  Receive Date: 20130528
  Receipt Date: 20130528
  Transmission Date: 20140414
  Serious: No
  Sender: FDA-Public Use
  Company Number: US-ABBOTT-13P-163-1082121-00

PATIENT
  Age: 41 Year
  Sex: Male
  Weight: 102.15 kg

DRUGS (3)
  1. ANDROGEL [Suspect]
     Indication: BLOOD TESTOSTERONE DECREASED
     Dates: start: 20130423
  2. SIMCOR [Concomitant]
     Indication: BLOOD CHOLESTEROL INCREASED
  3. LOVAZA [Concomitant]
     Indication: BLOOD CHOLESTEROL INCREASED

REACTIONS (1)
  - Anxiety [Recovering/Resolving]
